FAERS Safety Report 15113502 (Version 1)
Quarter: 2018Q3

REPORT INFORMATION
  Report Type: Spontaneous
  Country: US (occurrence: US)
  Receive Date: 20180706
  Receipt Date: 20180706
  Transmission Date: 20181010
  Serious: Yes (Other)
  Sender: FDA-Public Use
  Company Number: US-009507513-1806USA012850

PATIENT
  Sex: Female
  Weight: 40.82 kg

DRUGS (1)
  1. NEXPLANON [Suspect]
     Active Substance: ETONOGESTREL
     Dosage: ONE ROD
     Route: 059
     Dates: start: 201606

REACTIONS (6)
  - Post procedural inflammation [Unknown]
  - Device dislocation [Recovered/Resolved]
  - Surgery [Unknown]
  - Complication associated with device [Recovered/Resolved]
  - Ulnar nerve injury [Unknown]
  - Complication of device removal [Recovered/Resolved]
